FAERS Safety Report 6462029-1 (Version None)
Quarter: 2009Q4

REPORT INFORMATION
  Report Type: 
  Country: None (occurrence: None)
  Receive Date: 20091130
  Receipt Date: 20091113
  Transmission Date: 20100525
  Serious: Yes (Other)
  Sender: FDA-Public Use
  Company Number: PHHY2009TR49350

PATIENT
  Sex: Female
  Weight: 71 kg

DRUGS (2)
  1. MIACALCIN [Suspect]
     Indication: OSTEOPOROSIS
     Dosage: UNK
     Dates: start: 20070101
  2. MIACALCIN [Suspect]
     Dosage: 200 IU, UNK
     Route: 045
     Dates: start: 20090504

REACTIONS (5)
  - ARTERIOSPASM CORONARY [None]
  - CARDIAC DISORDER [None]
  - DYSPNOEA [None]
  - ELECTROCARDIOGRAM ABNORMAL [None]
  - MYALGIA [None]
